FAERS Safety Report 14107772 (Version 2)
Quarter: 2017Q4

REPORT INFORMATION
  Report Type: Report from Study
  Country: KR (occurrence: KR)
  Receive Date: 20171019
  Receipt Date: 20171106
  Transmission Date: 20180321
  Serious: Yes (Hospitalization)
  Sender: FDA-Public Use
  Company Number: KR-FERRINGPH-2017FE04991

PATIENT

DRUGS (12)
  1. PENIRAMIN [Concomitant]
     Dosage: 6 MG, DAILY
     Route: 048
     Dates: start: 20161028, end: 20161101
  2. SOMALGEN [Concomitant]
     Indication: RASH
     Dosage: 1110 MG, DAILY
     Route: 048
     Dates: start: 20161123, end: 20161125
  3. DEGARELIX [Suspect]
     Active Substance: DEGARELIX
     Indication: PROSTATE CANCER
     Dosage: 80 MG, MONTHLY
     Route: 058
     Dates: start: 20161123
  4. PENIRAMIN [Concomitant]
     Indication: RASH
     Dosage: 6 MG, DAILY
     Route: 048
     Dates: start: 20161123, end: 20161125
  5. GANATON [Concomitant]
     Active Substance: ITOPRIDE
     Dosage: 150 MG, DAILY
     Route: 048
     Dates: start: 20161028, end: 20161101
  6. OMNICEF [Concomitant]
     Active Substance: CEFDINIR
     Dosage: 300 MG, DAILY
     Route: 048
     Dates: start: 20161028, end: 20161101
  7. GANATON [Concomitant]
     Active Substance: ITOPRIDE
     Indication: RASH
     Dosage: 150 MG, DAILY
     Route: 048
     Dates: start: 20161123, end: 20161125
  8. DEGARELIX [Suspect]
     Active Substance: DEGARELIX
     Dosage: 240 MG, 1 TIME DAILY
     Route: 058
     Dates: start: 20161026, end: 20161026
  9. OMNICEF [Concomitant]
     Active Substance: CEFDINIR
     Indication: RASH
     Dosage: 300 MG, DAILY
     Route: 048
     Dates: start: 20161123, end: 20161125
  10. BUP-4 [Concomitant]
     Active Substance: PROPIVERINE
     Indication: HYPERTONIC BLADDER
     Dosage: 5 MG, DAILY
     Route: 048
     Dates: start: 20161123
  11. SOMALGEN [Concomitant]
     Dosage: 1110 MG, DAILY
     Route: 048
     Dates: start: 20161028, end: 20161101
  12. FLIVAS [Concomitant]
     Active Substance: NAFTOPIDIL
     Indication: HYPERTONIC BLADDER
     Dosage: 75 MG, DAILY
     Route: 048
     Dates: start: 20161123

REACTIONS (1)
  - Diabetes mellitus [Not Recovered/Not Resolved]

NARRATIVE: CASE EVENT DATE: 20170706
